FAERS Safety Report 4892781-8 (Version None)
Quarter: 2006Q1

REPORT INFORMATION
  Report Type: 
  Country: None (occurrence: None)
  Receive Date: 20060126
  Receipt Date: 20051125
  Transmission Date: 20060701
  Serious: No
  Sender: FDA-Public Use
  Company Number: JP-AVENTIS-200513554JP

PATIENT
  Age: 52 Year
  Sex: Female

DRUGS (10)
  1. AMARYL [Suspect]
     Indication: DIABETES MELLITUS
     Route: 048
     Dates: start: 20051021, end: 20051023
  2. AMARYL [Suspect]
     Route: 048
     Dates: start: 20051024, end: 20051125
  3. ZITHROMAC [Concomitant]
     Indication: NASOPHARYNGITIS
     Dosage: DOSE: 2TABLETS
     Route: 048
     Dates: start: 20051028, end: 20051031
  4. DASEN [Concomitant]
     Indication: NASOPHARYNGITIS
     Dosage: DOSE: 1TABLET
     Route: 048
     Dates: start: 20051028, end: 20051104
  5. TRANSAMIN [Concomitant]
     Indication: NASOPHARYNGITIS
     Dosage: DOSE: 1TABELT
     Route: 048
     Dates: start: 20051028, end: 20051104
  6. ACTOS [Concomitant]
     Indication: DIABETES MELLITUS
     Route: 048
     Dates: start: 20051110
  7. ANTIDIARRHOEAL MICROORGANISMS [Concomitant]
     Indication: DIARRHOEA
     Dosage: DOSE: 1TABLET
     Route: 048
     Dates: start: 20051022, end: 20051101
  8. TANNALBIN [Concomitant]
     Indication: DIARRHOEA
     Route: 048
     Dates: start: 20051022, end: 20051101
  9. LOPEMIN [Concomitant]
     Indication: DIARRHOEA
     Dosage: DOSE: 1CAPSULE
     Route: 048
     Dates: start: 20051022, end: 20051022
  10. SP TROCHE [Concomitant]
     Dosage: DOSE: 1TABLET
     Route: 048
     Dates: start: 20051028, end: 20051028

REACTIONS (2)
  - ALOPECIA [None]
  - NASOPHARYNGITIS [None]
